FAERS Safety Report 8192994-6 (Version None)
Quarter: 2012Q1

REPORT INFORMATION
  Report Type: 
  Country: None (occurrence: None)
  Receive Date: 20120308
  Receipt Date: 20120227
  Transmission Date: 20120608
  Serious: Yes (Death)
  Sender: FDA-Public Use
  Company Number: SE-NOVOPROD-345804

PATIENT
  Age: 69 Year
  Sex: Male

DRUGS (2)
  1. LANTUS [Concomitant]
     Dosage: UNK
     Dates: start: 20101215
  2. ACTRAPID PENFILL [Suspect]
     Indication: DIABETES MELLITUS
     Dosage: UNK
     Route: 065
     Dates: start: 20101215

REACTIONS (5)
  - HYPOGLYCAEMIA [None]
  - PRODUCT ODOUR ABNORMAL [None]
  - MYOCARDIAL INFARCTION [None]
  - DRUG INEFFECTIVE [None]
  - PRODUCT QUALITY ISSUE [None]
